FAERS Safety Report 9193879 (Version 2)
Quarter: 2013Q2

REPORT INFORMATION
  Report Type: Spontaneous
  Country: US (occurrence: US)
  Receive Date: 20130327
  Receipt Date: 20130403
  Transmission Date: 20140414
  Serious: Yes (Death)
  Sender: FDA-Public Use
  Company Number: US-PFIZER INC-2013097883

PATIENT
  Age: 23 Year
  Sex: Male

DRUGS (2)
  1. CHLORAMPHENICOL [Suspect]
     Dosage: 750 MG, 4X/DAY
     Route: 042
  2. PENICILLIN G [Concomitant]
     Dosage: 4 X 10^6 IU INTRAVENOUSLY EVERY SIX HOURS
     Route: 042

REACTIONS (18)
  - Aplastic anaemia [Fatal]
  - Haematocrit increased [None]
  - White blood cell count increased [None]
  - Cyanosis [None]
  - Dyspnoea [None]
  - Herpes zoster [None]
  - Cardiac murmur [None]
  - Intracranial pressure increased [None]
  - Cerebral cyst [None]
  - Post procedural haemorrhage [None]
  - Hemiplegia [None]
  - Confusion postoperative [None]
  - Pancytopenia [None]
  - Pyrexia [None]
  - Shock [None]
  - Disseminated intravascular coagulation [None]
  - Headache [None]
  - Rash vesicular [None]
